FAERS Safety Report 25410603 (Version 4)
Quarter: 2025Q3

REPORT INFORMATION
  Report Type: Spontaneous
  Country: US (occurrence: US)
  Receive Date: 20250609
  Receipt Date: 20250912
  Transmission Date: 20251021
  Serious: Yes (Death, Other)
  Sender: SANOFI AVENTIS
  Company Number: US-SA-2025SA161214

PATIENT
  Age: 46 Year
  Sex: Female

DRUGS (3)
  1. DUPIXENT [Suspect]
     Active Substance: DUPILUMAB
     Indication: Cystic fibrosis
     Dosage: 300 MG, QOW
     Route: 058
     Dates: start: 202505
  2. TRIKAFTA [Concomitant]
     Active Substance: ELEXACAFTOR\IVACAFTOR\TEZACAFTOR
  3. FASENRA [Concomitant]
     Active Substance: BENRALIZUMAB

REACTIONS (3)
  - Death [Fatal]
  - Product prescribing issue [Unknown]
  - Product use in unapproved indication [Unknown]

NARRATIVE: CASE EVENT DATE: 20250101
